FAERS Safety Report 5175367-X (Version None)
Quarter: 2006Q4

REPORT INFORMATION
  Report Type: 
  Country: None (occurrence: None)
  Receive Date: 20061211
  Receipt Date: 20061211
  Transmission Date: 20070319
  Serious: Yes (Life-Threatening)
  Sender: FDA-Public Use
  Company Number: None

PATIENT
  Sex: Female
  Weight: 66 kg

DRUGS (1)
  1. METOCLOPROMIDE 10MG [Suspect]
     Indication: PROPHYLAXIS OF NAUSEA AND VOMITING
     Dosage: 10MG PRE-OP IV
     Route: 042
     Dates: start: 20060529, end: 20060529

REACTIONS (1)
  - ANAPHYLACTIC REACTION [None]
